FAERS Safety Report 4617831-5 (Version None)
Quarter: 2005Q1

REPORT INFORMATION
  Report Type: 
  Country: None (occurrence: None)
  Receive Date: 20050315
  Receipt Date: 20050303
  Transmission Date: 20050727
  Serious: Yes (Hospitalization)
  Sender: FDA-Public Use
  Company Number: 2005-00506

PATIENT
  Age: 50 Year
  Sex: Female

DRUGS (1)
  1. IMMUCYST (BCG - IT (CONNAUGHT)), AVENTIS PASTEUR LTD., LOT NOT REP, I [Suspect]
     Indication: BLADDER CANCER
     Dosage: (81.0 MG); B.I.N. BLADDER

REACTIONS (3)
  - CYSTITIS [None]
  - DIFFICULTY IN WALKING [None]
  - REITER'S SYNDROME [None]
